FAERS Safety Report 22146169 (Version 1)
Quarter: 2023Q1

REPORT INFORMATION
  Report Type: Spontaneous
  Country: US (occurrence: None)
  Receive Date: 20230327
  Receipt Date: 20230327
  Transmission Date: 20230417
  Serious: Yes (Disabling)
  Sender: FDA-Public Use
  Company Number: None

PATIENT
  Age: 22 Year
  Sex: Male
  Weight: 90 kg

DRUGS (2)
  1. LEVAQUIN [Suspect]
     Active Substance: LEVOFLOXACIN
     Indication: Prostatitis
     Dates: start: 20220201, end: 20230222
  2. RABEPRAZOLE [Concomitant]

REACTIONS (6)
  - Pain [None]
  - Muscular weakness [None]
  - Fatigue [None]
  - Anxiety [None]
  - Depressed level of consciousness [None]
  - Quality of life decreased [None]

NARRATIVE: CASE EVENT DATE: 20230320
